FAERS Safety Report 5444359-5 (Version None)
Quarter: 2007Q3

REPORT INFORMATION
  Report Type: 
  Country: None (occurrence: None)
  Receive Date: 20070904
  Receipt Date: 20070904
  Transmission Date: 20080115
  Serious: No
  Sender: FDA-Public Use
  Company Number: None

PATIENT
  Sex: Female
  Weight: 113.3993 kg

DRUGS (1)
  1. LEVAQUIN [Suspect]
     Indication: DIVERTICULITIS
     Dosage: 1 TABLET ONCE A DAY PO
     Route: 048
     Dates: start: 20070403, end: 20070406

REACTIONS (3)
  - MENISCUS LESION [None]
  - PAIN IN EXTREMITY [None]
  - TENDON RUPTURE [None]
